FAERS Safety Report 4849381-5 (Version None)
Quarter: 2005Q4

REPORT INFORMATION
  Report Type: 
  Country: None (occurrence: None)
  Receive Date: 20051207
  Receipt Date: 20051128
  Transmission Date: 20060501
  Serious: Yes (Other)
  Sender: FDA-Public Use
  Company Number: 2005RR-01258

PATIENT
  Age: 7 Year
  Sex: Female

DRUGS (2)
  1. IBUPROFEN [Suspect]
  2. FLUCLOXACILLIN CAPSULE 250MG BP (FLUCLOXACILLIN) [Suspect]

REACTIONS (10)
  - COUGH [None]
  - DEHYDRATION [None]
  - HAEMODIALYSIS [None]
  - MALAISE [None]
  - PULMONARY PNEUMATOCELE [None]
  - PYREXIA [None]
  - RENAL CORTICAL NECROSIS [None]
  - RENAL FAILURE CHRONIC [None]
  - RENAL TUBULAR NECROSIS [None]
  - VOMITING [None]
